FAERS Safety Report 23116098 (Version 1)
Quarter: 2023Q4

REPORT INFORMATION
  Report Type: Report from Study
  Country: FR (occurrence: FR)
  Receive Date: 20231027
  Receipt Date: 20231027
  Transmission Date: 20240110
  Serious: Yes (Life-Threatening)
  Sender: FDA-Public Use
  Company Number: FR-ROCHE-3441520

PATIENT
  Age: 79 Year
  Sex: Female
  Weight: 67.5 kg

DRUGS (2)
  1. CARBOPLATIN [Suspect]
     Active Substance: CARBOPLATIN
     Indication: Neoplasm malignant
     Dosage: UNK, EVERY 3 WEEKS (MOST RECENT DOSE OF ETOPOSIDE GIVEN ON 04MAY2023)
     Route: 042
     Dates: start: 20230120, end: 20230504
  2. ETOPOSIDE [Suspect]
     Active Substance: ETOPOSIDE
     Indication: Neoplasm malignant
     Dosage: UNK, EVERY 3 WEEKS (MOST RECENT DOSE OF ETOPOSIDE GIVEN ON 04MAY2023)
     Route: 042
     Dates: start: 20230120, end: 20230504

REACTIONS (1)
  - Renal failure [Not Recovered/Not Resolved]

NARRATIVE: CASE EVENT DATE: 20230512
